FAERS Safety Report 5170226-0 (Version None)
Quarter: 2006Q4

REPORT INFORMATION
  Report Type: 
  Country: None (occurrence: None)
  Receive Date: 20061204
  Receipt Date: 20061121
  Transmission Date: 20070319
  Serious: Yes (Other)
  Sender: FDA-Public Use
  Company Number: 2006BL006506

PATIENT
  Sex: Male

DRUGS (3)
  1. ATROPINE SULFATE [Suspect]
     Indication: GASTROINTESTINAL CARCINOMA
     Dosage: 0.25 MILLIGRAMS; SUBCUTANEOUS
     Route: 058
  2. PREDNISOLONE SODIUM PHOSPHATE [Suspect]
     Indication: POLYMYOSITIS
  3. IRINOTECAN HCL [Suspect]
     Indication: GASTROINTESTINAL CARCINOMA

REACTIONS (2)
  - MUSCULAR WEAKNESS [None]
  - PARAPARESIS [None]
